FAERS Safety Report 25217065 (Version 1)
Quarter: 2025Q2

REPORT INFORMATION
  Report Type: Spontaneous
  Country: US (occurrence: US)
  Receive Date: 20250419
  Receipt Date: 20250419
  Transmission Date: 20250717
  Serious: Yes (Hospitalization)
  Sender: ROCHE
  Company Number: US-ROCHE-10000262475

PATIENT
  Sex: Female

DRUGS (1)
  1. ACTEMRA ACTPEN [Suspect]
     Active Substance: TOCILIZUMAB
     Indication: Rheumatoid arthritis
     Dosage: INJECT 162 MG SUBCUTANEOUSLY ONCE A WEEK?STRENGTH: 162MG/0.9ML SQ
     Route: 058

REACTIONS (6)
  - Infection [Unknown]
  - COVID-19 [Recovered/Resolved]
  - Pulmonary thrombosis [Recovered/Resolved]
  - Tooth extraction [Recovered/Resolved]
  - Influenza [Recovered/Resolved]
  - Malaise [Recovered/Resolved]
